FAERS Safety Report 15101045 (Version 1)
Quarter: 2018Q3

REPORT INFORMATION
  Report Type: Spontaneous
  Country: PR (occurrence: PR)
  Receive Date: 20180703
  Receipt Date: 20180703
  Transmission Date: 20181010
  Serious: No
  Sender: FDA-Public Use
  Company Number: PR-PFIZER INC-2018266680

PATIENT
  Age: 67 Year
  Sex: Female
  Weight: 64.85 kg

DRUGS (1)
  1. IBRANCE [Suspect]
     Active Substance: PALBOCICLIB
     Indication: BREAST CANCER
     Dosage: 100 MG, CYCLIC (DAILY 1?21/DAYS)
     Route: 048

REACTIONS (1)
  - Pain [Unknown]
